FAERS Safety Report 6797797-2 (Version None)
Quarter: 2010Q2

REPORT INFORMATION
  Report Type: 
  Country: None (occurrence: None)
  Receive Date: 20100623
  Receipt Date: 20100609
  Transmission Date: 20101027
  Serious: Yes (Death, Other)
  Sender: FDA-Public Use
  Company Number: 2010AL003507

PATIENT
  Age: 28 Year
  Sex: Male

DRUGS (7)
  1. OXYCODONE HCL [Suspect]
  2. NAPROXEN [Suspect]
  3. DIAZEPAM [Suspect]
  4. DIHYDROCODEINE BITARTRATE INJ [Concomitant]
  5. AMITRIPTYLINE [Concomitant]
  6. ZOPICLONE [Concomitant]
  7. NORDAZEPAM [Concomitant]

REACTIONS (4)
  - BLOOD ALCOHOL INCREASED [None]
  - MULTIPLE DRUG OVERDOSE ACCIDENTAL [None]
  - RESPIRATORY DEPRESSION [None]
  - TOXICOLOGIC TEST ABNORMAL [None]
